FAERS Safety Report 19042253 (Version 2)
Quarter: 2025Q2

REPORT INFORMATION
  Report Type: Report from Study
  Country: GB (occurrence: IT)
  Receive Date: 20210323
  Receipt Date: 20250429
  Transmission Date: 20250717
  Serious: Yes (Other)
  Sender: AUROBINDO
  Company Number: IT-VIIV HEALTHCARE LIMITED-IT2021GSK057932

PATIENT
  Age: 45 Year
  Sex: Male

DRUGS (17)
  1. LAMIVUDINE [Suspect]
     Active Substance: LAMIVUDINE
     Indication: HIV infection
     Route: 065
  2. LAMIVUDINE [Suspect]
     Active Substance: LAMIVUDINE
     Route: 065
  3. LAMIVUDINE [Suspect]
     Active Substance: LAMIVUDINE
     Route: 065
  4. LAMIVUDINE [Suspect]
     Active Substance: LAMIVUDINE
     Route: 065
  5. ABACAVIR SULFATE [Suspect]
     Active Substance: ABACAVIR SULFATE
     Indication: HIV infection
     Route: 065
  6. ABACAVIR SULFATE [Suspect]
     Active Substance: ABACAVIR SULFATE
     Route: 065
  7. ABACAVIR SULFATE [Suspect]
     Active Substance: ABACAVIR SULFATE
     Route: 065
  8. ABACAVIR SULFATE [Suspect]
     Active Substance: ABACAVIR SULFATE
     Route: 065
  9. RITONAVIR [Suspect]
     Active Substance: RITONAVIR
     Indication: HIV infection
     Route: 065
  10. RITONAVIR [Suspect]
     Active Substance: RITONAVIR
     Route: 065
  11. RITONAVIR [Suspect]
     Active Substance: RITONAVIR
     Route: 065
  12. RITONAVIR [Suspect]
     Active Substance: RITONAVIR
     Route: 065
  13. FOSAMPRENAVIR [Suspect]
     Active Substance: FOSAMPRENAVIR
     Indication: HIV infection
     Route: 065
  14. FOSAMPRENAVIR [Suspect]
     Active Substance: FOSAMPRENAVIR
     Route: 065
  15. FOSAMPRENAVIR [Suspect]
     Active Substance: FOSAMPRENAVIR
     Route: 065
  16. FOSAMPRENAVIR [Suspect]
     Active Substance: FOSAMPRENAVIR
     Route: 065
  17. ZIDOVUDINE [Concomitant]
     Active Substance: ZIDOVUDINE
     Indication: HIV infection
     Route: 065

REACTIONS (9)
  - Brain oedema [Recovered/Resolved]
  - Cognitive disorder [Recovered/Resolved]
  - CSF HIV escape syndrome [Recovered/Resolved]
  - Cerebral disorder [Recovered/Resolved]
  - Virologic failure [Recovered/Resolved]
  - White matter lesion [Recovered/Resolved]
  - Disease recurrence [Recovered/Resolved]
  - Nervous system disorder [Recovered/Resolved]
  - Peripheral venous disease [Recovered/Resolved]
